FAERS Safety Report 26202708 (Version 1)
Quarter: 2025Q4

REPORT INFORMATION
  Report Type: Spontaneous
  Country: CN (occurrence: CN)
  Receive Date: 20251226
  Receipt Date: 20251226
  Transmission Date: 20260118
  Serious: Yes (Other)
  Sender: SANOFI AVENTIS
  Company Number: CN-SA-2025SA378610

PATIENT
  Age: 51 Year
  Sex: Male
  Weight: 62 kg

DRUGS (6)
  1. THYMOGLOBULINE [Suspect]
     Active Substance: LAPINE T-LYMPHOCYTE IMMUNE GLOBULIN
     Indication: Stem cell transplant
     Dosage: 125 MG, QD
     Route: 041
     Dates: start: 20251204, end: 20251204
  2. THYMOGLOBULINE [Suspect]
     Active Substance: LAPINE T-LYMPHOCYTE IMMUNE GLOBULIN
     Dosage: 125 MG, QD
     Route: 041
     Dates: start: 20251205, end: 20251207
  3. BUSULFAN [Concomitant]
     Active Substance: BUSULFAN
     Indication: Myeloid leukaemia
     Dosage: 0.8 MG/KG, Q6H (DAY: 1-4)
     Dates: start: 20251201
  4. FLUDARABINE [Concomitant]
     Active Substance: FLUDARABINE PHOSPHATE
     Indication: Acute myeloid leukaemia
     Dosage: 30 MG/M2, QD (DAY: 1-5)
     Dates: start: 20251201
  5. CYTARABINE [Concomitant]
     Active Substance: CYTARABINE
     Indication: Acute myeloid leukaemia
     Dosage: 1 G/M2, QD (DAY: 1-5)
     Dates: start: 20251201
  6. CYCLOPHOSPHAMIDE [Concomitant]
     Active Substance: CYCLOPHOSPHAMIDE
     Indication: Acute myeloid leukaemia
     Dosage: 30 MG/KG, QD (DAY: 6-7)
     Dates: start: 20251201

REACTIONS (3)
  - Hyperpyrexia [Recovering/Resolving]
  - Temperature intolerance [Recovering/Resolving]
  - Chills [Recovering/Resolving]

NARRATIVE: CASE EVENT DATE: 20251204
